FAERS Safety Report 16940951 (Version 1)
Quarter: 2019Q4

REPORT INFORMATION
  Report Type: Spontaneous
  Country: US (occurrence: US)
  Receive Date: 20191018
  Receipt Date: 20191018
  Transmission Date: 20200122
  Serious: Yes (Death)
  Sender: FDA-Public Use
  Company Number: None

PATIENT
  Age: 82 Year
  Sex: Female
  Weight: 65.7 kg

DRUGS (4)
  1. RISPERDONE [Suspect]
     Active Substance: RISPERIDONE
     Indication: AGITATION
     Dosage: ?          QUANTITY:4 TABLET(S);?
     Route: 048
     Dates: start: 20190813, end: 20190818
  2. BLOOD THINNER [Concomitant]
     Active Substance: UNSPECIFIED INGREDIENT
  3. FUROSEMIDE. [Concomitant]
     Active Substance: FUROSEMIDE
  4. INSULIN [Concomitant]
     Active Substance: INSULIN NOS

REACTIONS (8)
  - Peripheral swelling [None]
  - Cardiac arrest [None]
  - Blood glucose increased [None]
  - Off label use [None]
  - Seizure [None]
  - Agitation [None]
  - Sedation [None]
  - Contraindicated product administered [None]

NARRATIVE: CASE EVENT DATE: 20190818
